FAERS Safety Report 12224370 (Version 2)
Quarter: 2016Q4

REPORT INFORMATION
  Report Type: Spontaneous
  Country: US (occurrence: US)
  Receive Date: 20160331
  Receipt Date: 20161114
  Transmission Date: 20170207
  Serious: Yes (Hospitalization, Other)
  Sender: FDA-Public Use
  Company Number: US-ASTRAZENECA-2016SE33009

PATIENT
  Age: 55 Year
  Sex: Female
  Weight: 112 kg

DRUGS (5)
  1. SYMBICORT [Suspect]
     Active Substance: BUDESONIDE\FORMOTEROL FUMARATE DIHYDRATE
     Indication: ASTHMA
     Dosage: 80 MCG/4.5 MCG, TWO PUFFS EVERY 12 HOURS
     Route: 055
     Dates: start: 2009
  2. TUDORZA PRESSAIR [Suspect]
     Active Substance: ACLIDINIUM BROMIDE
     Indication: CHRONIC OBSTRUCTIVE PULMONARY DISEASE
     Route: 055
     Dates: start: 20160323
  3. TUDORZA PRESSAIR [Suspect]
     Active Substance: ACLIDINIUM BROMIDE
     Indication: CHRONIC OBSTRUCTIVE PULMONARY DISEASE
     Route: 055
     Dates: start: 2014
  4. SYMBICORT [Suspect]
     Active Substance: BUDESONIDE\FORMOTEROL FUMARATE DIHYDRATE
     Indication: CHRONIC OBSTRUCTIVE PULMONARY DISEASE
     Dosage: 80 MCG/4.5 MCG, TWO PUFFS EVERY 12 HOURS
     Route: 055
     Dates: start: 2009
  5. OXYGEN. [Concomitant]
     Active Substance: OXYGEN
     Indication: DYSPNOEA
     Dosage: CONTINUOUSLY
     Route: 045
     Dates: start: 2011

REACTIONS (10)
  - Fall [Unknown]
  - Fatigue [Unknown]
  - Extrasystoles [Unknown]
  - Amnesia [Unknown]
  - Device malfunction [Unknown]
  - Arthropathy [Unknown]
  - Weight decreased [Unknown]
  - Product taste abnormal [Unknown]
  - Hernia [Unknown]
  - Jaw disorder [Unknown]

NARRATIVE: CASE EVENT DATE: 2011
